FAERS Safety Report 4934915-2 (Version None)
Quarter: 2006Q1

REPORT INFORMATION
  Report Type: 
  Country: None (occurrence: None)
  Receive Date: 20060306
  Receipt Date: 20060306
  Transmission Date: 20060701
  Serious: Yes (Other)
  Sender: FDA-Public Use
  Company Number: None

PATIENT
  Age: 53 Year
  Sex: Female
  Weight: 90.7194 kg

DRUGS (1)
  1. ZICAM      ZICUM GLUCONICUM  2X       MATRIXX [Suspect]
     Indication: NASOPHARYNGITIS
     Dosage: 1 SPRAY EACH NOSTRIL   2X DAY   NASAL
     Route: 045
     Dates: start: 20060210, end: 20060214

REACTIONS (2)
  - AGEUSIA [None]
  - ANOSMIA [None]
